FAERS Safety Report 9866651 (Version 1)
Quarter: 2014Q1

REPORT INFORMATION
  Report Type: Spontaneous
  Country: US (occurrence: US)
  Receive Date: 20140204
  Receipt Date: 20140204
  Transmission Date: 20141002
  Serious: No
  Sender: FDA-Public Use
  Company Number: US-BIOGENIDEC-2014BI007687

PATIENT
  Sex: Female

DRUGS (14)
  1. TECFIDERA [Suspect]
     Indication: MULTIPLE SCLEROSIS
     Route: 048
     Dates: start: 201304
  2. BUPROPION HCL SR [Concomitant]
  3. FOLTANX [Concomitant]
  4. BETHANECHOL CHLORIDE [Concomitant]
  5. MONTELUKAST SODIUM [Concomitant]
  6. CETIRIZINE HCL [Concomitant]
  7. RANITIDINE HCL [Concomitant]
  8. BENADRYL [Concomitant]
  9. EVAMIST [Concomitant]
  10. VICODIN [Concomitant]
  11. WELLBUTRIN SR [Concomitant]
  12. NAMENDA [Concomitant]
  13. SYNTHROID [Concomitant]
  14. MAXALT [Concomitant]

REACTIONS (1)
  - Tinnitus [Unknown]
